FAERS Safety Report 8956756 (Version 1)
Quarter: 2012Q4

REPORT INFORMATION
  Report Type: Report from Study
  Country: GB (occurrence: GB)
  Receive Date: 20121210
  Receipt Date: 20121210
  Transmission Date: 20130627
  Serious: Yes (Hospitalization)
  Sender: FDA-Public Use
  Company Number: GB-ROCHE-687950

PATIENT
  Age: 65 Year
  Sex: Male
  Weight: 51.5 kg

DRUGS (6)
  1. CAPECITABINE [Suspect]
     Indication: ADENOCARCINOMA PANCREAS
     Dosage: DATE OF MOST RECENT DOSE: 24 FEBRUARY 2010. ACTION TAKEN WITH STUDY MEDICATION : MEDICATION DELAYED
     Route: 048
     Dates: start: 20100113
  2. OMEPRAZOLE [Concomitant]
     Indication: ANTACID THERAPY
     Dosage: DATE OF LAST DOSE PRIOR TO SAE: 02 MARCH 2010
     Route: 048
  3. LOPERAMIDE [Concomitant]
     Indication: DIARRHOEA
     Dosage: DATE OF LAST DOSE PRIOR TO SAE: 02 MARCH 2010
     Route: 048
  4. DOMPERIDONE [Concomitant]
     Indication: ANTIEMETIC SUPPORTIVE CARE
     Dosage: DATE OF LAST DOSE PRIOR TO SAE: 02 MARCH 2010
     Route: 048
  5. CREON [Concomitant]
     Indication: ENZYME SUPPLEMENTATION
     Dosage: daily dose 100000 unit and unit dose :25000 units QDS  DATE OF LAST DOSE PRIOR TO SAE: 02 MARCH 2010
     Route: 048
     Dates: start: 20100106, end: 20100217
  6. CREON [Concomitant]
     Dosage: daily dose 100000 unit and unit dose :25000 units QDS  DATE OF LAST DOSE PRIOR TO SAE:02/Mar/2010
     Route: 048

REACTIONS (1)
  - Diarrhoea [Unknown]
